FAERS Safety Report 8082541-1 (Version None)
Quarter: 2012Q1

REPORT INFORMATION
  Report Type: 
  Country: None (occurrence: None)
  Receive Date: 20120127
  Receipt Date: 20110221
  Transmission Date: 20120608
  Serious: No
  Sender: FDA-Public Use
  Company Number: US-ABBOTT-11P-163-0706754-00

PATIENT
  Age: 11 Year
  Sex: Female

DRUGS (1)
  1. HUMIRA [Suspect]
     Indication: PRODUCT USED FOR UNKNOWN INDICATION
     Dates: start: 20101018

REACTIONS (5)
  - SKIN PAPILLOMA [None]
  - DIARRHOEA HAEMORRHAGIC [None]
  - CELLULITIS [None]
  - DIARRHOEA [None]
  - LOCALISED INFECTION [None]
